FAERS Safety Report 10558973 (Version 3)
Quarter: 2014Q4

REPORT INFORMATION
  Report Type: Report from Study
  Country: CA (occurrence: CA)
  Receive Date: 20141102
  Receipt Date: 20141226
  Transmission Date: 20150529
  Serious: Yes (Hospitalization, Other)
  Sender: FDA-Public Use
  Company Number: CA-AMGEN-CANSL2014083570

PATIENT
  Age: 70 Year
  Sex: Male

DRUGS (1)
  1. PROLIA [Suspect]
     Active Substance: DENOSUMAB
     Indication: OSTEOPOROSIS
     Dosage: 60 MG/ML, UNK
     Route: 065
     Dates: start: 20130517

REACTIONS (6)
  - Intestinal perforation [Recovering/Resolving]
  - Diverticulitis [Unknown]
  - Infected skin ulcer [Not Recovered/Not Resolved]
  - Umbilical hernia repair [Recovering/Resolving]
  - Pyrexia [Recovering/Resolving]
  - Bladder perforation [Recovering/Resolving]

NARRATIVE: CASE EVENT DATE: 20141014
